FAERS Safety Report 12052000 (Version 1)
Quarter: 2016Q1

REPORT INFORMATION
  Report Type: Spontaneous
  Country: KR (occurrence: KR)
  Receive Date: 20160209
  Receipt Date: 20160209
  Transmission Date: 20160526
  Serious: Yes (Other)
  Sender: FDA-Public Use
  Company Number: PHHY2016KR014518

PATIENT
  Age: 54 Year
  Sex: Female

DRUGS (1)
  1. PREDNISOLONE. [Suspect]
     Active Substance: PREDNISOLONE
     Indication: TOLOSA-HUNT SYNDROME
     Dosage: 30 MG, QD
     Route: 048

REACTIONS (5)
  - Drug intolerance [Unknown]
  - Gastrointestinal disorder [Unknown]
  - Generalised oedema [Unknown]
  - Cushingoid [Unknown]
  - Disease recurrence [Recovered/Resolved]
